FAERS Safety Report 6152877-X (Version None)
Quarter: 2009Q2

REPORT INFORMATION
  Report Type: 
  Country: None (occurrence: None)
  Receive Date: 20090413
  Receipt Date: 20090403
  Transmission Date: 20091009
  Serious: Yes (Other)
  Sender: FDA-Public Use
  Company Number: PHEH2009US03370

PATIENT
  Sex: Female

DRUGS (4)
  1. TEKTURNA [Interacting]
     Dosage: 150 MG
  2. TEKTURNA [Interacting]
     Dosage: 150 MG
     Dates: start: 20090403
  3. DILANTIN                                /AUS/ [Interacting]
     Indication: CONVULSION
     Dosage: UNK
  4. KIONEX [Suspect]
     Dosage: 120 ML, QD

REACTIONS (3)
  - ASTHENIA [None]
  - DRUG INTERACTION [None]
  - HYPOACUSIS [None]
